FAERS Safety Report 8268505-3 (Version None)
Quarter: 2012Q2

REPORT INFORMATION
  Report Type: 
  Country: None (occurrence: None)
  Receive Date: 20120409
  Receipt Date: 20120403
  Transmission Date: 20120825
  Serious: Yes (Other)
  Sender: FDA-Public Use
  Company Number: US-GLAXOSMITHKLINE-A0876549A

PATIENT
  Sex: Female
  Weight: 108.6 kg

DRUGS (2)
  1. AVANDAMET [Suspect]
     Indication: DIABETES MELLITUS
     Route: 048
     Dates: start: 20030101, end: 20080101
  2. AVANDIA [Suspect]
     Indication: DIABETES MELLITUS
     Dosage: 4MG UNKNOWN
     Route: 048
     Dates: end: 20060101

REACTIONS (8)
  - PULMONARY HYPERTENSION [None]
  - CARDIOVASCULAR DISORDER [None]
  - SWELLING [None]
  - HEPATIC CIRRHOSIS [None]
  - DYSPNOEA [None]
  - OEDEMA [None]
  - CHEST PAIN [None]
  - HYPERTENSION [None]
